FAERS Safety Report 7319559-X (Version None)
Quarter: 2011Q1

REPORT INFORMATION
  Report Type: 
  Country: None (occurrence: None)
  Receive Date: 20110228
  Receipt Date: 20100518
  Transmission Date: 20110831
  Serious: No
  Sender: FDA-Public Use
  Company Number: A0860526A

PATIENT
  Sex: Female

DRUGS (2)
  1. CHANTIX [Suspect]
     Route: 065
  2. LAMICTAL [Suspect]
     Indication: BIPOLAR DISORDER
     Dosage: 400MG PER DAY
     Route: 065

REACTIONS (2)
  - ALOPECIA [None]
  - DRUG INTERACTION [None]
